FAERS Safety Report 21433400 (Version 2)
Quarter: 2022Q4

REPORT INFORMATION
  Report Type: Report from Study
  Country: US (occurrence: US)
  Receive Date: 20221010
  Receipt Date: 20221230
  Transmission Date: 20230113
  Serious: No
  Sender: FDA-Public Use
  Company Number: US-ABBVIE-4145046

PATIENT
  Sex: Female

DRUGS (3)
  1. SKYRIZI [Suspect]
     Active Substance: RISANKIZUMAB-RZAA
     Indication: Psoriasis
     Dosage: 150 MG?DRUG START DATE 06 JUN 2022
     Route: 058
  2. Covid-19 Vaccine [Concomitant]
     Indication: COVID-19 immunisation
     Dosage: FIRST DOSE, 1 IN 1 DAY
     Route: 030
     Dates: start: 2021, end: 2021
  3. Covid-19 Vaccine [Concomitant]
     Indication: COVID-19 immunisation
     Dosage: SECOND DOSE, 1 IN 1 DAY
     Route: 030
     Dates: start: 2021, end: 2021

REACTIONS (7)
  - Limb injury [Unknown]
  - Pain [Recovered/Resolved]
  - Injection site pain [Recovered/Resolved]
  - Drug ineffective [Not Recovered/Not Resolved]
  - Fall [Not Recovered/Not Resolved]
  - Pruritus [Unknown]
  - Skin exfoliation [Unknown]

NARRATIVE: CASE EVENT DATE: 20220101
